FAERS Safety Report 15339693 (Version 1)
Quarter: 2018Q3

REPORT INFORMATION
  Report Type: Spontaneous
  Country: SE (occurrence: SE)
  Receive Date: 20180831
  Receipt Date: 20180831
  Transmission Date: 20181010
  Serious: Yes (Life-Threatening, Other)
  Sender: FDA-Public Use
  Company Number: PHHY2018SE079215

PATIENT
  Age: 62 Year
  Sex: Male

DRUGS (1)
  1. METHOTREXATE. [Suspect]
     Active Substance: METHOTREXATE
     Indication: MYCOSIS FUNGOIDES
     Route: 065

REACTIONS (8)
  - Neutrophil count decreased [Recovered/Resolved]
  - Mycosis fungoides [Unknown]
  - Product use in unapproved indication [Unknown]
  - White blood cell count decreased [Recovered/Resolved]
  - Recurrent cancer [Unknown]
  - Platelet count decreased [Unknown]
  - Dry mouth [Recovered/Resolved]
  - Fatigue [Recovered/Resolved]
